FAERS Safety Report 18097285 (Version 6)
Quarter: 2022Q2

REPORT INFORMATION
  Report Type: Spontaneous
  Country: BR (occurrence: BR)
  Receive Date: 20200731
  Receipt Date: 20220628
  Transmission Date: 20220721
  Serious: Yes (Other)
  Sender: FDA-Public Use
  Company Number: BR-GLAXOSMITHKLINE-BR2019AMR207163

PATIENT

DRUGS (1)
  1. NUCALA [Suspect]
     Active Substance: MEPOLIZUMAB
     Indication: Asthma
     Dosage: 100 MG, UNK
     Route: 042
     Dates: start: 20190813

REACTIONS (12)
  - Asthmatic crisis [Not Recovered/Not Resolved]
  - Influenza [Recovered/Resolved]
  - Painful respiration [Unknown]
  - Wheezing [Not Recovered/Not Resolved]
  - Secretion discharge [Unknown]
  - Pulpitis dental [Recovering/Resolving]
  - Eosinophil count increased [Unknown]
  - Spirometry abnormal [Unknown]
  - Coronavirus infection [Recovered/Resolved]
  - Traumatic lung injury [Unknown]
  - Product use issue [Recovered/Resolved]
  - Product dose omission issue [Unknown]

NARRATIVE: CASE EVENT DATE: 20200922
